FAERS Safety Report 5590310-7 (Version None)
Quarter: 2008Q1

REPORT INFORMATION
  Report Type: 
  Country: None (occurrence: None)
  Receive Date: 20080109
  Receipt Date: 20071231
  Transmission Date: 20080703
  Serious: Yes (Other)
  Sender: FDA-Public Use
  Company Number: 2008000038

PATIENT
  Age: 54 Year
  Sex: Female
  Weight: 72.6 kg

DRUGS (1)
  1. KIRKLAND SIGNATURE 2% (MINOXIDIL) [Suspect]
     Indication: ALOPECIA
     Dosage: 1 MG 2 X'S A DAY, TOPICAL
     Route: 061
     Dates: start: 20071227, end: 20071229

REACTIONS (3)
  - RASH [None]
  - SWELLING [None]
  - SWELLING FACE [None]
